FAERS Safety Report 9471879 (Version 1)
Quarter: 2013Q3

REPORT INFORMATION
  Report Type: Spontaneous
  Country: US (occurrence: US)
  Receive Date: 20130823
  Receipt Date: 20130823
  Transmission Date: 20140515
  Serious: No
  Sender: FDA-Public Use
  Company Number: US-B.I. PHARMACEUTICALS,INC./RIDGEFIELD-2013-BI-25212BP

PATIENT
  Sex: Female

DRUGS (8)
  1. COMBIVENT [Suspect]
     Indication: CHRONIC OBSTRUCTIVE PULMONARY DISEASE
     Dosage: STRENGTH: 18 MCG / 103 MCG;
     Route: 055
     Dates: end: 2013
  2. COMBIVENT [Suspect]
     Indication: CHRONIC OBSTRUCTIVE PULMONARY DISEASE
     Dosage: STRENGTH: 20 MCG / 100 MCG;
     Route: 055
     Dates: start: 2013
  3. COMBIVENT [Suspect]
     Indication: EMPHYSEMA
  4. METOPROLOL [Concomitant]
     Indication: HYPERTENSION
     Route: 048
  5. ALBUTEROL [Concomitant]
     Indication: CHRONIC OBSTRUCTIVE PULMONARY DISEASE
     Route: 055
  6. ALBUTEROL [Concomitant]
     Indication: EMPHYSEMA
  7. VERAPAMIL [Concomitant]
     Indication: TACHYCARDIA
     Route: 048
  8. VERAPAMIL [Concomitant]
     Indication: ATRIAL FIBRILLATION

REACTIONS (3)
  - Atrial fibrillation [Recovered/Resolved]
  - Choking [Not Recovered/Not Resolved]
  - Drug effect decreased [Not Recovered/Not Resolved]
